FAERS Safety Report 11717130 (Version 2)
Quarter: 2015Q4

REPORT INFORMATION
  Report Type: Spontaneous
  Country: US (occurrence: US)
  Receive Date: 20151104
  Receipt Date: 20151120
  Transmission Date: 20160304
  Serious: No
  Sender: FDA-Public Use
  Company Number: US-ELI_LILLY_AND_COMPANY-US201106000970

PATIENT
  Age: 76 Year
  Sex: Female

DRUGS (2)
  1. FORTEO [Suspect]
     Active Substance: TERIPARATIDE
     Indication: OSTEOPOROSIS
     Dosage: 20 UG, QD
     Route: 058
     Dates: start: 20110527
  2. FORTEO [Suspect]
     Active Substance: TERIPARATIDE
     Dosage: 20 UG, QD
     Route: 058

REACTIONS (8)
  - Dizziness [Unknown]
  - Malaise [Unknown]
  - Injection site rash [Unknown]
  - Injection site erythema [Unknown]
  - Blood glucose increased [Unknown]
  - Pyrexia [Unknown]
  - Upper limb fracture [Unknown]
  - Nausea [Unknown]

NARRATIVE: CASE EVENT DATE: 20130305
